FAERS Safety Report 7291720-2 (Version None)
Quarter: 2011Q1

REPORT INFORMATION
  Report Type: 
  Country: None (occurrence: None)
  Receive Date: 20110214
  Receipt Date: 20090328
  Transmission Date: 20110831
  Serious: Yes (Death)
  Sender: FDA-Public Use
  Company Number: IN-PFIZER INC-2009165173

PATIENT
  Age: 35 Year
  Sex: Female
  Weight: 45 kg

DRUGS (9)
  1. CLARITHROMYCIN [Concomitant]
     Dates: start: 20090114
  2. MAGNAMYCIN [Suspect]
     Indication: SEPSIS
     Dosage: 2 G, 2X/DAY
     Route: 042
     Dates: start: 20090114
  3. LEVOFLOXACIN [Concomitant]
     Dates: start: 20090114
  4. METRONIDAZOLE BENZOATE [Concomitant]
     Dates: start: 20090106
  5. MOXIFLOXACIN [Concomitant]
     Dates: start: 20090106, end: 20090114
  6. TEICOPLANIN [Concomitant]
     Dates: start: 20090108, end: 20090115
  7. MAGNAMYCIN [Suspect]
     Indication: PNEUMONIA ASPIRATION
  8. PIPERACILLIN AND TAZOBACTAM [Concomitant]
     Dates: start: 20090106, end: 20090107
  9. MEROPENEM [Concomitant]
     Dates: start: 20090107, end: 20090114

REACTIONS (1)
  - CARDIAC ARREST [None]
